FAERS Safety Report 17959360 (Version 1)
Quarter: 2020Q2

REPORT INFORMATION
  Report Type: Spontaneous
  Country: CN (occurrence: CN)
  Receive Date: 20200629
  Receipt Date: 20200629
  Transmission Date: 20200714
  Serious: Yes (Life-Threatening, Other)
  Sender: FDA-Public Use
  Company Number: CN-NAPPMUNDI-GBR-2020-0077421

PATIENT
  Age: 67 Year
  Sex: Male
  Weight: 54 kg

DRUGS (1)
  1. MS CONTIN [Suspect]
     Active Substance: MORPHINE SULFATE
     Indication: ANALGESIC THERAPY
     Dosage: 150 MG, DAILY
     Route: 048
     Dates: start: 20200615, end: 20200615

REACTIONS (7)
  - Hypertension [Recovered/Resolved]
  - Lethargy [Unknown]
  - Agitation [Unknown]
  - Dyspnoea [Recovering/Resolving]
  - Dizziness [Recovering/Resolving]
  - Arrhythmia [Unknown]
  - Persecutory delusion [Recovering/Resolving]

NARRATIVE: CASE EVENT DATE: 20200616
